FAERS Safety Report 11218090 (Version 1)
Quarter: 2015Q2

REPORT INFORMATION
  Report Type: Spontaneous
  Country: US (occurrence: None)
  Receive Date: 20150624
  Receipt Date: 20150624
  Transmission Date: 20150821
  Serious: Yes (Hospitalization, Other)
  Sender: FDA-Public Use
  Company Number: None

PATIENT
  Age: 41 Year
  Sex: Female
  Weight: 67.59 kg

DRUGS (19)
  1. NOREPINEPHRINE REUPTAKE BLOCKERS [Concomitant]
  2. NORTHERA [Suspect]
     Active Substance: DROXIDOPA
     Indication: ORTHOSTATIC HYPOTENSION
     Route: 048
     Dates: start: 20150417, end: 20150613
  3. FAMOTIDINE. [Concomitant]
     Active Substance: FAMOTIDINE
  4. NORTRIPTYLINE [Concomitant]
     Active Substance: NORTRIPTYLINE
  5. MIDODRINE [Concomitant]
     Active Substance: MIDODRINE
  6. RELPAX [Concomitant]
     Active Substance: ELETRIPTAN HYDROBROMIDE
  7. CERITIZINE [Concomitant]
  8. NUCYNTA [Concomitant]
     Active Substance: TAPENTADOL HYDROCHLORIDE
  9. PROPRANOLOL [Concomitant]
     Active Substance: PROPRANOLOL\PROPRANOLOL HYDROCHLORIDE
  10. BUTTONS PATCH [Concomitant]
  11. LINZESS [Concomitant]
     Active Substance: LINACLOTIDE
  12. NORTHERA [Suspect]
     Active Substance: DROXIDOPA
     Indication: AUTONOMIC NEUROPATHY
     Route: 048
     Dates: start: 20150417, end: 20150613
  13. SAVELLA [Concomitant]
     Active Substance: MILNACIPRAN HYDROCHLORIDE
  14. PLAQUENIL [Concomitant]
     Active Substance: HYDROXYCHLOROQUINE SULFATE
  15. PHENTERMINE [Concomitant]
     Active Substance: PHENTERMINE
  16. FIORICET/BUTALBITAL/CAFFEINE [Concomitant]
  17. LYRICA [Concomitant]
     Active Substance: PREGABALIN
  18. ALPRAZOLAM. [Concomitant]
     Active Substance: ALPRAZOLAM
  19. LUNESTA [Concomitant]
     Active Substance: ESZOPICLONE

REACTIONS (2)
  - Congestive cardiomyopathy [None]
  - Chest pain [None]

NARRATIVE: CASE EVENT DATE: 20150613
